FAERS Safety Report 8435753-9 (Version None)
Quarter: 2012Q2

REPORT INFORMATION
  Report Type: 
  Country: None (occurrence: None)
  Receive Date: 20120614
  Receipt Date: 20120608
  Transmission Date: 20120825
  Serious: Yes (Hospitalization)
  Sender: FDA-Public Use
  Company Number: GB-ALLERGAN-1208042US

PATIENT
  Sex: Female

DRUGS (1)
  1. OPTIVE [Suspect]
     Indication: PRODUCT USED FOR UNKNOWN INDICATION
     Route: 047

REACTIONS (5)
  - INFLUENZA LIKE ILLNESS [None]
  - FACIAL PAIN [None]
  - SWELLING FACE [None]
  - EYE PAIN [None]
  - FOREIGN BODY SENSATION IN EYES [None]
